FAERS Safety Report 7726616-2 (Version None)
Quarter: 2011Q3

REPORT INFORMATION
  Report Type: 
  Country: None (occurrence: None)
  Receive Date: 20110902
  Receipt Date: 20110822
  Transmission Date: 20111222
  Serious: Yes (Hospitalization)
  Sender: FDA-Public Use
  Company Number: US-ELI_LILLY_AND_COMPANY-US201108006777

PATIENT
  Age: 75 Year
  Sex: Female

DRUGS (2)
  1. ASENAPINE [Concomitant]
     Route: 060
  2. ZYPREXA [Suspect]

REACTIONS (2)
  - HYPOAESTHESIA [None]
  - WEIGHT INCREASED [None]
